FAERS Safety Report 21082523 (Version 3)
Quarter: 2023Q2

REPORT INFORMATION
  Report Type: Spontaneous
  Country: JP (occurrence: JP)
  Receive Date: 20220714
  Receipt Date: 20230406
  Transmission Date: 20230722
  Serious: Yes (Life-Threatening, Other)
  Sender: FDA-Public Use
  Company Number: JP-MSD-M2022-18506

PATIENT
  Age: 87 Year
  Sex: Female
  Weight: 47 kg

DRUGS (3)
  1. ROCURONIUM BROMIDE [Suspect]
     Active Substance: ROCURONIUM BROMIDE
     Indication: Neuromuscular blocking therapy
     Dosage: 190 MILLIGRAM, QD
     Route: 041
     Dates: start: 20201012, end: 20201012
  2. BRIDION [Suspect]
     Active Substance: SUGAMMADEX
     Dosage: 200 MILLIGRAM, QD
     Route: 041
     Dates: start: 20201012, end: 20201012
  3. BRIDION [Suspect]
     Active Substance: SUGAMMADEX
     Dosage: UNK
     Route: 051
     Dates: start: 2021

REACTIONS (4)
  - Recurrence of neuromuscular blockade [Recovered/Resolved]
  - Respiratory arrest [Recovered/Resolved]
  - Overdose [Unknown]
  - Inappropriate schedule of product administration [Unknown]

NARRATIVE: CASE EVENT DATE: 20201012
